FAERS Safety Report 25937370 (Version 2)
Quarter: 2025Q4

REPORT INFORMATION
  Report Type: Spontaneous
  Country: EU (occurrence: EU)
  Receive Date: 20251018
  Receipt Date: 20251125
  Transmission Date: 20260118
  Serious: Yes (Other)
  Sender: AZURITY PHARMACEUTICALS
  Company Number: EU-AZURITY PHARMACEUTICALS, INC.-AZR202510-003190

PATIENT
  Age: 8 Year
  Sex: Male
  Weight: 24 kg

DRUGS (2)
  1. TRIPTORELIN [Suspect]
     Active Substance: TRIPTORELIN
     Indication: Precocious puberty
     Dosage: 11.25 MILLIGRAM (EVERY 12 WEEKS) (11.25 MG / 12 SEMAINES POWDER AND SOLVENT FOR SUSPENSION FOR INJEC
     Route: 065
     Dates: start: 20241024, end: 20250730
  2. ENANTONE LP [Suspect]
     Active Substance: LEUPROLIDE ACETATE
     Indication: Precocious puberty
     Dosage: 11.25 MILLIGRAM, IN 12 WEEK
     Route: 065
     Dates: start: 20240501, end: 20240831

REACTIONS (4)
  - Somnolence [Recovering/Resolving]
  - Epilepsy [Not Recovered/Not Resolved]
  - Somnolence [Not Recovered/Not Resolved]
  - Injection site reaction [Recovered/Resolved]

NARRATIVE: CASE EVENT DATE: 20240501
